FAERS Safety Report 10183541 (Version 1)
Quarter: 2014Q2

REPORT INFORMATION
  Report Type: Spontaneous
  Country: KZ (occurrence: KZ)
  Receive Date: 20140520
  Receipt Date: 20140520
  Transmission Date: 20141212
  Serious: Yes (Other)
  Sender: FDA-Public Use
  Company Number: KZ-JNJFOC-20140509125

PATIENT
  Sex: Female

DRUGS (4)
  1. REMICADE [Suspect]
     Indication: ANKYLOSING SPONDYLITIS
     Dosage: 5 INFUSIONS
     Route: 042
  2. REMICADE [Suspect]
     Indication: CROHN^S DISEASE
     Dosage: 5 INFUSIONS
     Route: 042
  3. METHOTREXATE [Concomitant]
     Route: 065
  4. MESALAZINE [Concomitant]
     Route: 065

REACTIONS (1)
  - Fibroadenoma of breast [Not Recovered/Not Resolved]
